FAERS Safety Report 4911981-1 (Version None)
Quarter: 2006Q1

REPORT INFORMATION
  Report Type: 
  Country: None (occurrence: None)
  Receive Date: 20060215
  Receipt Date: 20060207
  Transmission Date: 20060701
  Serious: Yes (Death, Hospitalization)
  Sender: FDA-Public Use
  Company Number: PHBS2006DE02039

PATIENT
  Age: 40 Year
  Sex: Male

DRUGS (6)
  1. METHOTREXATE [Suspect]
     Indication: STEM CELL TRANSPLANT
  2. TREOSULFAN [Suspect]
     Indication: STEM CELL TRANSPLANT
  3. CYCLOPHOSPHAMIDE [Suspect]
     Indication: STEM CELL TRANSPLANT
  4. CYCLOSPORINE [Suspect]
     Indication: STEM CELL TRANSPLANT
     Route: 065
  5. FLUCONAZOLE [Concomitant]
  6. VORICONAZOLE [Concomitant]

REACTIONS (14)
  - ACUTE RESPIRATORY FAILURE [None]
  - ASPERGILLOSIS [None]
  - BREAST ENGORGEMENT [None]
  - C-REACTIVE PROTEIN INCREASED [None]
  - CANDIDA SEROLOGY POSITIVE [None]
  - CANDIDIASIS [None]
  - CAPILLARY LEAK SYNDROME [None]
  - FUNGUS SEROLOGY TEST POSITIVE [None]
  - GRAFT VERSUS HOST DISEASE [None]
  - LEUKAEMIA RECURRENT [None]
  - LIFE SUPPORT [None]
  - LUNG INFILTRATION [None]
  - PYREXIA [None]
  - TRACHEOSTOMY [None]
